FAERS Safety Report 5131520-2 (Version None)
Quarter: 2006Q4

REPORT INFORMATION
  Report Type: 
  Country: None (occurrence: None)
  Receive Date: 20061020
  Receipt Date: 20061017
  Transmission Date: 20070319
  Serious: Yes (Hospitalization)
  Sender: FDA-Public Use
  Company Number: FR-SANOFI-SYNTHELABO-F01200602132

PATIENT
  Sex: Male
  Weight: 71 kg

DRUGS (3)
  1. RITUXIMAB [Suspect]
     Dosage: 375 MG/M2 ON DAY 1, Q2W
     Route: 065
     Dates: start: 20061014, end: 20061014
  2. GEMCITABINE [Suspect]
     Dosage: 1000 MG/M2 ON DAY 2, Q2W
     Route: 042
     Dates: start: 20061014, end: 20061014
  3. OXALIPLATIN [Suspect]
     Indication: DIFFUSE LARGE B-CELL LYMPHOMA REFRACTORY
     Dosage: 100 MG/M2 ON DAY 2, Q2W
     Route: 042
     Dates: start: 20061014, end: 20061014

REACTIONS (2)
  - BACTERAEMIA [None]
  - STAPHYLOCOCCAL BACTERAEMIA [None]
